FAERS Safety Report 7118785-2 (Version None)
Quarter: 2010Q4

REPORT INFORMATION
  Report Type: 
  Country: None (occurrence: None)
  Receive Date: 20101123
  Receipt Date: 20101111
  Transmission Date: 20110411
  Serious: Yes (Hospitalization, Other)
  Sender: FDA-Public Use
  Company Number: US-ELI_LILLY_AND_COMPANY-US201011005345

PATIENT
  Age: 73 Year
  Sex: Male

DRUGS (6)
  1. PRASUGREL HYDROCHLORIDE [Suspect]
     Indication: ACUTE CORONARY SYNDROME
     Dosage: 10 MG, ONCE
     Dates: start: 20100527, end: 20100527
  2. PRASUGREL HYDROCHLORIDE [Suspect]
     Dosage: 10 MG, DAILY (1/D)
     Dates: start: 20100527
  3. ASPIRIN [Concomitant]
     Dosage: 325 MG, UNK
     Dates: start: 20100524
  4. LISINOPRIL [Concomitant]
     Indication: CORONARY ARTERY DISEASE
     Dosage: 40 MG, 2/D
     Route: 050
     Dates: start: 20100527
  5. PRILOSEC [Concomitant]
     Indication: PROPHYLAXIS
     Dosage: 20 MG, DAILY (1/D)
     Route: 048
     Dates: start: 20100527
  6. ZOCOR [Concomitant]
     Indication: CORONARY ARTERY DISEASE
     Dosage: 20 MG, DAILY (1/D)
     Route: 048
     Dates: start: 20100527

REACTIONS (2)
  - ABDOMINAL PAIN [None]
  - HAEMATURIA [None]
